FAERS Safety Report 14244286 (Version 1)
Quarter: 2017Q4

REPORT INFORMATION
  Report Type: Spontaneous
  Country: CA (occurrence: CA)
  Receive Date: 20171201
  Receipt Date: 20171201
  Transmission Date: 20180321
  Serious: Yes (Other)
  Sender: FDA-Public Use
  Company Number: CA-JNJFOC-20171130541

PATIENT
  Age: 7 Year
  Sex: Male

DRUGS (1)
  1. CONCERTA [Suspect]
     Active Substance: METHYLPHENIDATE HYDROCHLORIDE
     Indication: ATTENTION DEFICIT/HYPERACTIVITY DISORDER
     Route: 065
     Dates: start: 20171107, end: 20171121

REACTIONS (7)
  - Suicidal ideation [Unknown]
  - Abdominal pain upper [Unknown]
  - Aggression [Unknown]
  - Withdrawal syndrome [Unknown]
  - Insomnia [Unknown]
  - Epistaxis [Unknown]
  - Emotional disorder [Unknown]
